FAERS Safety Report 6182179-7 (Version None)
Quarter: 2009Q2

REPORT INFORMATION
  Report Type: 
  Country: None (occurrence: None)
  Receive Date: 20090507
  Receipt Date: 20090427
  Transmission Date: 20091009
  Serious: Yes (Other)
  Sender: FDA-Public Use
  Company Number: PHHY2009JP16266

PATIENT
  Age: 4 Month

DRUGS (1)
  1. ZADITEN [Suspect]
     Indication: URTICARIA
     Route: 048

REACTIONS (2)
  - AGRANULOCYTOSIS [None]
  - PYREXIA [None]
